FAERS Safety Report 4876519-6 (Version None)
Quarter: 2006Q1

REPORT INFORMATION
  Report Type: 
  Country: None (occurrence: None)
  Receive Date: 20060110
  Receipt Date: 20060106
  Transmission Date: 20060701
  Serious: Yes (Other)
  Sender: FDA-Public Use
  Company Number: US-GLAXOSMITHKLINE-A0588409A

PATIENT
  Age: 30 Year
  Sex: Female

DRUGS (4)
  1. BUPROPION [Suspect]
     Indication: MAJOR DEPRESSION
     Dosage: 450MG PER DAY
     Route: 048
  2. ZOLOFT [Concomitant]
  3. PROVIGIL [Concomitant]
  4. ABILIFY [Concomitant]

REACTIONS (2)
  - ABORTION SPONTANEOUS [None]
  - DRUG EXPOSURE DURING PREGNANCY [None]
